FAERS Safety Report 12634191 (Version 1)
Quarter: 2016Q3

REPORT INFORMATION
  Report Type: Spontaneous
  Country: US (occurrence: US)
  Receive Date: 20160808
  Receipt Date: 20160808
  Transmission Date: 20161109
  Serious: Yes (Other)
  Sender: FDA-Public Use
  Company Number: PHHY2016US106578

PATIENT
  Age: 28 Month
  Sex: Female

DRUGS (2)
  1. MYCOPHENOLATE MOFETIL. [Suspect]
     Active Substance: MYCOPHENOLATE MOFETIL
     Indication: IMMUNOSUPPRESSANT DRUG THERAPY
     Dosage: 800 MG/M2, QD
     Route: 065
  2. TACROLIMUS. [Suspect]
     Active Substance: TACROLIMUS
     Indication: IMMUNOSUPPRESSANT DRUG THERAPY
     Dosage: 10-12 NG/ML
     Route: 065

REACTIONS (5)
  - Leukopenia [Unknown]
  - Viral infection [Unknown]
  - Tracheo-oesophageal fistula [Unknown]
  - Bacterial infection [Unknown]
  - Enterocolitis [Unknown]
